FAERS Safety Report 4464181-6 (Version None)
Quarter: 2004Q4

REPORT INFORMATION
  Report Type: 
  Country: None (occurrence: None)
  Receive Date: 20041001
  Receipt Date: 20040805
  Transmission Date: 20050328
  Serious: Yes (Other)
  Sender: FDA-Public Use
  Company Number: US-GLAXOSMITHKLINE-A0521596A

PATIENT
  Age: 52 Year
  Sex: Female
  Weight: 84.1 kg

DRUGS (5)
  1. PAXIL [Suspect]
     Indication: DEPRESSION
     Dosage: 40MG UNKNOWN
     Route: 048
     Dates: end: 20040825
  2. SYNTHROID [Concomitant]
     Indication: HYPOTHYROIDISM
  3. FLONASE [Concomitant]
  4. IMITREX [Concomitant]
     Indication: MIGRAINE
  5. AMERGE [Concomitant]

REACTIONS (15)
  - DECREASED APPETITE [None]
  - DEPRESSION [None]
  - DIARRHOEA [None]
  - DIZZINESS [None]
  - DRUG INEFFECTIVE [None]
  - DRUG WITHDRAWAL SYNDROME [None]
  - FEELING ABNORMAL [None]
  - HYPERHIDROSIS [None]
  - MOOD ALTERED [None]
  - NAUSEA [None]
  - SUICIDAL IDEATION [None]
  - SYNCOPE [None]
  - VOMITING [None]
  - WEIGHT DECREASED [None]
  - WEIGHT INCREASED [None]
